FAERS Safety Report 6601573-0 (Version None)
Quarter: 2010Q1

REPORT INFORMATION
  Report Type: 
  Country: None (occurrence: None)
  Receive Date: 20100225
  Receipt Date: 20091223
  Transmission Date: 20100710
  Serious: No
  Sender: FDA-Public Use
  Company Number: US-KINGPHARMUSA00001-K200901618

PATIENT
  Age: 76 Year
  Sex: Male
  Weight: 95.238 kg

DRUGS (5)
  1. FLECTOR [Suspect]
     Indication: PAIN IN EXTREMITY
     Dosage: 1 PATCH, QD
     Route: 061
     Dates: start: 20091101, end: 20091218
  2. NEXIUM [Concomitant]
     Indication: REFLUX OESOPHAGITIS
     Dosage: 40 MG, QD
     Route: 048
  3. ALLOPURINOL [Concomitant]
     Indication: GOUT
     Dosage: 100 MG, QD
     Route: 048
  4. BENZTROPINE MESYLATE [Concomitant]
     Indication: HYPERTENSION
     Dosage: 20 MG, QD
  5. VOLTAREN [Concomitant]
     Indication: PAIN IN EXTREMITY
     Dosage: UNK
     Route: 061

REACTIONS (2)
  - HEADACHE [None]
  - NAUSEA [None]
